FAERS Safety Report 18622824 (Version 2)
Quarter: 2020Q4

REPORT INFORMATION
  Report Type: Spontaneous
  Country: BR (occurrence: BR)
  Receive Date: 20201216
  Receipt Date: 20201221
  Transmission Date: 20210114
  Serious: Yes (Disabling, Other)
  Sender: FDA-Public Use
  Company Number: BR-SA-2020SA353073

PATIENT

DRUGS (2)
  1. CYCLOSPORINE. [Concomitant]
     Active Substance: CYCLOSPORINE
  2. DUPIXENT [Suspect]
     Active Substance: DUPILUMAB
     Indication: DERMATITIS ATOPIC
     Dosage: UNK
     Dates: start: 2020

REACTIONS (18)
  - Discharge [Recovering/Resolving]
  - Blood thyroid stimulating hormone increased [Recovering/Resolving]
  - Fall [Recovering/Resolving]
  - Chills [Recovering/Resolving]
  - High density lipoprotein decreased [Recovering/Resolving]
  - Hypotension [Recovering/Resolving]
  - Bedridden [Recovering/Resolving]
  - Skin discolouration [Recovering/Resolving]
  - Alagille syndrome [Recovering/Resolving]
  - Adrenal insufficiency [Recovering/Resolving]
  - Generalised oedema [Recovering/Resolving]
  - Condition aggravated [Recovering/Resolving]
  - Thyroid function test abnormal [Recovering/Resolving]
  - Infection [Recovering/Resolving]
  - Thyroxine decreased [Recovering/Resolving]
  - C-reactive protein increased [Recovering/Resolving]
  - Micturition disorder [Recovering/Resolving]
  - Dehydration [Recovering/Resolving]

NARRATIVE: CASE EVENT DATE: 2020
